FAERS Safety Report 13167866 (Version 1)
Quarter: 2017Q1

REPORT INFORMATION
  Report Type: Report from Study
  Country: PT (occurrence: PT)
  Receive Date: 20170131
  Receipt Date: 20170131
  Transmission Date: 20170428
  Serious: Yes (Other)
  Sender: FDA-Public Use
  Company Number: PT-INGENUS PHARMACEUTICALS NJ, LLC-ING201701-000028

PATIENT

DRUGS (1)
  1. CARISOPRODOL AND ASPIRIN [Suspect]
     Active Substance: ASPIRIN\CARISOPRODOL

REACTIONS (5)
  - Wheezing [Unknown]
  - Cough [Unknown]
  - Periorbital oedema [Unknown]
  - Angioedema [Unknown]
  - Bronchospasm [Unknown]
